FAERS Safety Report 20615442 (Version 1)
Quarter: 2022Q1

REPORT INFORMATION
  Report Type: Spontaneous
  Country: CN (occurrence: None)
  Receive Date: 20220321
  Receipt Date: 20220321
  Transmission Date: 20220423
  Serious: Yes (Hospitalization)
  Sender: FDA-Public Use
  Company Number: CN-ROCHE-3054247

PATIENT
  Age: 26 Year
  Sex: Female

DRUGS (1)
  1. TOCILIZUMAB [Suspect]
     Active Substance: TOCILIZUMAB
     Indication: Rheumatoid arthritis
     Dosage: FOR 6 TIMES
     Route: 065

REACTIONS (2)
  - Heavy menstrual bleeding [Unknown]
  - Anaemia [Unknown]

NARRATIVE: CASE EVENT DATE: 20211201
